FAERS Safety Report 7237792-2 (Version None)
Quarter: 2011Q1

REPORT INFORMATION
  Report Type: 
  Country: None (occurrence: None)
  Receive Date: 20110118
  Receipt Date: 20110110
  Transmission Date: 20110831
  Serious: Yes (Other)
  Sender: FDA-Public Use
  Company Number: OSCN-PR-0905S-0247

PATIENT
  Sex: Female

DRUGS (2)
  1. OMNISCAN [Suspect]
     Indication: PRODUCT USED FOR UNKNOWN INDICATION
     Dosage: SINGLE DOSE
     Dates: start: 20040615, end: 20040615
  2. GADOLINIUM (UNSPECIFIED) [Suspect]
     Dosage: SINGLE DOSE
     Dates: start: 20040908, end: 20040908

REACTIONS (1)
  - NEPHROGENIC SYSTEMIC FIBROSIS [None]
